FAERS Safety Report 5838498-4 (Version None)
Quarter: 2008Q3

REPORT INFORMATION
  Report Type: 
  Country: None (occurrence: None)
  Receive Date: 20080808
  Receipt Date: 20080805
  Transmission Date: 20090109
  Serious: Yes (Other)
  Sender: FDA-Public Use
  Company Number: US-ASTRAZENECA-2008UW15530

PATIENT
  Age: 76 Year
  Sex: Female
  Weight: 55.8 kg

DRUGS (3)
  1. ARIMIDEX [Suspect]
     Indication: BREAST CANCER
     Route: 048
     Dates: start: 20060101, end: 20080801
  2. LOPRESSOR [Concomitant]
  3. ZESTRIL [Concomitant]
     Route: 048

REACTIONS (4)
  - CARPAL TUNNEL SYNDROME [None]
  - LYMPHADENECTOMY [None]
  - NEOPLASM MALIGNANT [None]
  - RECURRENT CANCER [None]
